FAERS Safety Report 5929270-5 (Version None)
Quarter: 2008Q4

REPORT INFORMATION
  Report Type: 
  Country: None (occurrence: None)
  Receive Date: 20081023
  Receipt Date: 20081023
  Transmission Date: 20090506
  Serious: No
  Sender: FDA-Public Use
  Company Number: None

PATIENT
  Age: 30 Year
  Sex: Female
  Weight: 58.9676 kg

DRUGS (1)
  1. PROAIR HFA [Suspect]
     Indication: ASTHMA
     Dosage: 8.5G 4X DAILY PO
     Route: 048
     Dates: start: 20080101, end: 20080701

REACTIONS (3)
  - APHTHOUS STOMATITIS [None]
  - PRODUCT QUALITY ISSUE [None]
  - THROAT IRRITATION [None]
